FAERS Safety Report 19126422 (Version 4)
Quarter: 2021Q2

REPORT INFORMATION
  Report Type: Report from Study
  Country: US (occurrence: US)
  Receive Date: 20210413
  Receipt Date: 20210625
  Transmission Date: 20210717
  Serious: Yes (Death, Hospitalization)
  Sender: FDA-Public Use
  Company Number: NVSC2021US082349

PATIENT
  Age: 1 Year
  Sex: Male
  Weight: 9.9 kg

DRUGS (2)
  1. ZOLGENSMA [Suspect]
     Active Substance: ONASEMNOGENE ABEPARVOVEC-XIOI
     Indication: SPINAL MUSCULAR ATROPHY
     Dosage: 16.6 ML
     Route: 042
     Dates: start: 20200810, end: 20200810
  2. SIMILAC [Concomitant]
     Active Substance: DEXTROSE\WATER
     Indication: PRODUCT USED FOR UNKNOWN INDICATION
     Dosage: 120 ML, QID
     Route: 065

REACTIONS (12)
  - Dyspnoea [Unknown]
  - Dysphagia [Unknown]
  - Cardiac arrest [Fatal]
  - Rhinovirus infection [Fatal]
  - Pneumonia [Fatal]
  - Hypoxia [Unknown]
  - Increased bronchial secretion [Unknown]
  - Acute respiratory failure [Fatal]
  - Oxygen saturation decreased [Unknown]
  - Pyrexia [Unknown]
  - Pneumothorax [Fatal]
  - Tachycardia [Unknown]

NARRATIVE: CASE EVENT DATE: 20210327
